FAERS Safety Report 8190190-X (Version None)
Quarter: 2012Q1

REPORT INFORMATION
  Report Type: 
  Country: None (occurrence: None)
  Receive Date: 20120305
  Receipt Date: 20120221
  Transmission Date: 20120608
  Serious: Yes (Life-Threatening, Hospitalization, Other)
  Sender: FDA-Public Use
  Company Number: AMAG201200019

PATIENT
  Age: 57 Year
  Sex: Male
  Weight: 145 kg

DRUGS (17)
  1. FERAHEME [Suspect]
     Indication: ANAEMIA
     Dosage: 510 MG, SINGLE, IV PUSH
     Route: 042
     Dates: start: 20111129, end: 20111129
  2. FERAHEME [Suspect]
     Indication: RENAL FAILURE CHRONIC
     Dosage: 510 MG, SINGLE, IV PUSH
     Route: 042
     Dates: start: 20111129, end: 20111129
  3. ASPIRIN [Concomitant]
  4. LISINOPRIL (LISINOPRIL DIHYDRATE) [Concomitant]
  5. ADVAIR HFA [Concomitant]
  6. FUROSEMIDE (FUROSEMIDE SODIUM) [Concomitant]
  7. HYDRALAZINE HCL [Concomitant]
  8. LOSARTAN POTASSIUM [Concomitant]
  9. ALLOPURINOL [Concomitant]
  10. COREG [Concomitant]
  11. SIMVASTATIN [Concomitant]
  12. COLCHICINE [Concomitant]
  13. COMBIVENT [Concomitant]
  14. DOXAZOSIN (DOXAZOSIN MESILATE) [Concomitant]
  15. ISOSORBIDE DINITRATE [Concomitant]
  16. PHOSLO [Concomitant]
  17. PREDNISOLONE ACETATE [Concomitant]

REACTIONS (11)
  - FEELING HOT [None]
  - MUSCULOSKELETAL STIFFNESS [None]
  - CARDIAC ARREST [None]
  - PULSELESS ELECTRICAL ACTIVITY [None]
  - UNRESPONSIVE TO STIMULI [None]
  - LOSS OF CONSCIOUSNESS [None]
  - RENAL FAILURE ACUTE [None]
  - HYPERSENSITIVITY [None]
  - ANAPHYLACTIC REACTION [None]
  - PULSE ABSENT [None]
  - GAIT DISTURBANCE [None]
